FAERS Safety Report 15077612 (Version 1)
Quarter: 2018Q2

REPORT INFORMATION
  Report Type: Spontaneous
  Country: US (occurrence: US)
  Receive Date: 20180627
  Receipt Date: 20180627
  Transmission Date: 20180711
  Serious: No
  Sender: FDA-Public Use
  Company Number: US-ENDO PHARMACEUTICALS INC-2017-004030

PATIENT
  Sex: Male
  Weight: 95.24 kg

DRUGS (7)
  1. OPANA [Suspect]
     Active Substance: OXYMORPHONE HYDROCHLORIDE
     Indication: BACK PAIN
     Dosage: 10 MG, CUTS IN HALF, TAKE EVERY COUPLE OF HOURS IN BETWEEN THE ER TABLETS, TAKES 8 TIMES PER DAY
     Route: 065
     Dates: start: 201101
  2. MORPHINE SULFATE. [Concomitant]
     Active Substance: MORPHINE SULFATE
     Indication: BACK PAIN
  3. DILAUDID [Concomitant]
     Active Substance: HYDROMORPHONE HYDROCHLORIDE
     Indication: NECK PAIN
  4. OXYMORPHONE HYDROCHLORIDE. [Concomitant]
     Active Substance: OXYMORPHONE HYDROCHLORIDE
     Indication: PRODUCT USED FOR UNKNOWN INDICATION
  5. OXYCODONE [Concomitant]
     Active Substance: OXYCODONE
     Indication: BACK PAIN
  6. OPANA [Concomitant]
     Active Substance: OXYMORPHONE HYDROCHLORIDE
     Indication: BACK PAIN
     Dosage: 30 MG, BID
     Route: 065
     Dates: start: 201101
  7. DILAUDID [Concomitant]
     Active Substance: HYDROMORPHONE HYDROCHLORIDE
     Indication: BACK PAIN

REACTIONS (2)
  - Intentional product misuse [Unknown]
  - Inappropriate schedule of drug administration [Unknown]
